FAERS Safety Report 12459193 (Version 1)
Quarter: 2016Q2

REPORT INFORMATION
  Report Type: Spontaneous
  Country: FR (occurrence: FR)
  Receive Date: 20160613
  Receipt Date: 20160613
  Transmission Date: 20160815
  Serious: Yes (Death, Hospitalization, Other)
  Sender: FDA-Public Use
  Company Number: FR-SUN PHARMACEUTICAL INDUSTRIES LTD-2016RR-118322

PATIENT
  Age: 16 Year
  Sex: Female

DRUGS (4)
  1. FENOFIBRATE. [Suspect]
     Active Substance: FENOFIBRATE
     Indication: SUICIDE ATTEMPT
     Dosage: 1 BLISTER
     Route: 065
  2. PREDNISONE. [Suspect]
     Active Substance: PREDNISONE
     Indication: SUICIDE ATTEMPT
     Dosage: APPROXIMATELY 20 TABLETS OF 20 MG
     Route: 065
  3. COLCHICINE. [Suspect]
     Active Substance: COLCHICINE
     Indication: SUICIDE ATTEMPT
     Dosage: 50 TO 60 TABLETS OF 1 MG
     Route: 065
  4. IBUPROFEN. [Suspect]
     Active Substance: IBUPROFEN
     Indication: SUICIDE ATTEMPT
     Dosage: 1 BLISTER OF 400 MG TABLETS
     Route: 065

REACTIONS (13)
  - Respiratory distress [Fatal]
  - Leukocytosis [Fatal]
  - Somnolence [Unknown]
  - Multiple organ dysfunction syndrome [Fatal]
  - Vomiting [Unknown]
  - Hepatocellular injury [Fatal]
  - Blood lactic acid increased [Fatal]
  - Thrombocytopenia [Fatal]
  - Toxicity to various agents [Fatal]
  - Coagulopathy [Fatal]
  - Metabolic acidosis [Fatal]
  - Renal impairment [Fatal]
  - Cardiogenic shock [Fatal]
